FAERS Safety Report 23236739 (Version 1)
Quarter: 2023Q4

REPORT INFORMATION
  Report Type: Spontaneous
  Country: US (occurrence: US)
  Receive Date: 20231128
  Receipt Date: 20231128
  Transmission Date: 20240109
  Serious: No
  Sender: FDA-Public Use
  Company Number: US-BAYER-2023A167755

PATIENT

DRUGS (7)
  1. CLARITIN [Suspect]
     Active Substance: LORATADINE
  2. IBRANCE [Suspect]
     Active Substance: PALBOCICLIB
     Dosage: 125MG BY MOUTH DAILY FOR 21 DAYS ON, 7 DAYS OFF
     Dates: start: 20231016
  3. ANASTROZOLE [Concomitant]
     Active Substance: ANASTROZOLE
  4. ONDANSETRON [Concomitant]
     Active Substance: ONDANSETRON
  5. BUSCOPALAMINE [Concomitant]
  6. XGEVA [Concomitant]
     Active Substance: DENOSUMAB
  7. TRIAMCINOLONE [Concomitant]
     Active Substance: TRIAMCINOLONE

REACTIONS (1)
  - Drug ineffective [Unknown]
